FAERS Safety Report 21394115 (Version 7)
Quarter: 2023Q2

REPORT INFORMATION
  Report Type: Spontaneous
  Country: US (occurrence: US)
  Receive Date: 20220930
  Receipt Date: 20230602
  Transmission Date: 20230722
  Serious: No
  Sender: FDA-Public Use
  Company Number: US-BRISTOL-MYERS SQUIBB COMPANY-2022-114074

PATIENT
  Age: 75 Year
  Sex: Male

DRUGS (4)
  1. ELIQUIS [Interacting]
     Active Substance: APIXABAN
     Indication: Product used for unknown indication
  2. OFEV [Interacting]
     Active Substance: NINTEDANIB
     Indication: Pulmonary fibrosis
     Route: 048
     Dates: start: 20220521
  3. OFEV [Interacting]
     Active Substance: NINTEDANIB
     Route: 048
  4. OFEV [Interacting]
     Active Substance: NINTEDANIB
     Route: 048
     Dates: start: 202209

REACTIONS (11)
  - Drug interaction [Unknown]
  - Abdominal distension [Unknown]
  - Flatulence [Unknown]
  - Alanine aminotransferase increased [Unknown]
  - Abdominal discomfort [Unknown]
  - Diarrhoea [Recovered/Resolved]
  - Gastric disorder [Unknown]
  - Gastrointestinal disorder [Recovered/Resolved]
  - Sputum increased [Unknown]
  - Urine abnormality [Unknown]
  - Abdominal pain upper [Not Recovered/Not Resolved]

NARRATIVE: CASE EVENT DATE: 20220501
